FAERS Safety Report 8576705-8 (Version None)
Quarter: 2012Q3

REPORT INFORMATION
  Report Type: 
  Country: None (occurrence: None)
  Receive Date: 20120807
  Receipt Date: 20120730
  Transmission Date: 20120928
  Serious: Yes (Other)
  Sender: FDA-Public Use
  Company Number: US-GLAXOSMITHKLINE-A0988493A

PATIENT
  Age: 72 Year
  Sex: Female
  Weight: 90.9 kg

DRUGS (3)
  1. LAMICTAL [Suspect]
     Indication: DEPRESSION
     Route: 065
     Dates: start: 20120101
  2. PRISTIQ [Suspect]
     Indication: DEPRESSION
     Route: 065
     Dates: start: 20120101
  3. KLONOPIN [Concomitant]

REACTIONS (9)
  - PRURITUS [None]
  - SCAR [None]
  - CONTUSION [None]
  - PAIN OF SKIN [None]
  - DERMATITIS ACNEIFORM [None]
  - HAIR DISORDER [None]
  - SKIN DISCOLOURATION [None]
  - CLOSTRIDIAL INFECTION [None]
  - SKIN EXFOLIATION [None]
